FAERS Safety Report 4559490-6 (Version None)
Quarter: 2005Q1

REPORT INFORMATION
  Report Type: 
  Country: None (occurrence: None)
  Receive Date: 20050119
  Receipt Date: 20050110
  Transmission Date: 20050727
  Serious: Yes (Life-Threatening)
  Sender: FDA-Public Use
  Company Number: 2005010799

PATIENT
  Age: 85 Year
  Sex: Female
  Weight: 68 kg

DRUGS (7)
  1. ALDACTONE [Suspect]
     Indication: HYPERTENSION
     Dosage: 50 MG (50MG, INTERVAL:  EVERY DAY), ORAL
     Route: 048
     Dates: start: 20040715, end: 20041114
  2. ALDACTONE [Suspect]
     Indication: OEDEMA PERIPHERAL
     Dosage: 50 MG (50MG, INTERVAL:  EVERY DAY), ORAL
     Route: 048
     Dates: start: 20040715, end: 20041114
  3. VERAPAMIL [Concomitant]
  4. MADOPAR W/CLAVULANATE POTASSIUM (AMOXICILLIN, CLAVULANATE POTASSIUM) [Concomitant]
  5. INSULIN [Concomitant]
  6. CLOPIDOGREL BISULFATE [Concomitant]
  7. BUFLOMEDIL (BUFLOMEDIL) [Concomitant]

REACTIONS (5)
  - ASTHENIA [None]
  - CARDIO-RESPIRATORY ARREST [None]
  - HYPERKALAEMIA [None]
  - POLYURIA [None]
  - RENAL FAILURE [None]
